FAERS Safety Report 16892640 (Version 1)
Quarter: 2019Q4

REPORT INFORMATION
  Report Type: Spontaneous
  Country: US (occurrence: US)
  Receive Date: 20191007
  Receipt Date: 20191007
  Transmission Date: 20200122
  Serious: No
  Sender: FDA-Public Use
  Company Number: US-009507513-1910USA001111

PATIENT
  Sex: Female

DRUGS (3)
  1. CETROTIDE [Suspect]
     Active Substance: CETRORELIX ACETATE
  2. FOLLISTIM AQ [Suspect]
     Active Substance: FOLLITROPIN
     Indication: INFERTILITY
     Dosage: 375 INTERNATIONAL UNIT, QD
     Route: 058
     Dates: start: 20190219
  3. PUREGON PEN [DEVICE] [Suspect]
     Active Substance: DEVICE

REACTIONS (2)
  - Rash [Unknown]
  - Headache [Unknown]

NARRATIVE: CASE EVENT DATE: 2019
